FAERS Safety Report 8129048-0 (Version None)
Quarter: 2012Q1

REPORT INFORMATION
  Report Type: 
  Country: None (occurrence: None)
  Receive Date: 20120210
  Receipt Date: 20110822
  Transmission Date: 20120608
  Serious: No
  Sender: FDA-Public Use
  Company Number: US-BRISTOL-MYERS SQUIBB COMPANY-15989734

PATIENT
  Age: 68 Year
  Sex: Female

DRUGS (5)
  1. WARFARIN SODIUM [Concomitant]
  2. METHOTREXATE [Concomitant]
  3. PREMARIN [Concomitant]
  4. ORENCIA [Suspect]
  5. LANOXIN [Concomitant]

REACTIONS (1)
  - LIBIDO DECREASED [None]
